FAERS Safety Report 7462646-6 (Version None)
Quarter: 2011Q2

REPORT INFORMATION
  Report Type: 
  Country: None (occurrence: None)
  Receive Date: 20110506
  Receipt Date: 20110408
  Transmission Date: 20111010
  Serious: Yes (Hospitalization, Other)
  Sender: FDA-Public Use
  Company Number: US-BAYER-201041670NA

PATIENT
  Age: 21 Year
  Sex: Female
  Weight: 108.84 kg

DRUGS (9)
  1. ALBUTEROL INHALER [Concomitant]
     Indication: ASTHMA
  2. ASTHMA MEDS [Concomitant]
     Dosage: UNK
     Dates: start: 19990101
  3. DUAC [Concomitant]
  4. METFORMIN [Concomitant]
  5. YASMIN [Suspect]
     Indication: PRODUCT USED FOR UNKNOWN INDICATION
     Route: 048
  6. ALBUTEROL INHALER [Concomitant]
     Indication: WHEEZING
     Dosage: UNK UNK, PRN
  7. ALDACTONE [Concomitant]
  8. RETIN-A MICRO [Concomitant]
     Dosage: 0.04 %, UNK
  9. YAZ [Suspect]
     Indication: PREMENSTRUAL SYNDROME
     Route: 048

REACTIONS (1)
  - PULMONARY EMBOLISM [None]
